FAERS Safety Report 6284883-9 (Version None)
Quarter: 2009Q3

REPORT INFORMATION
  Report Type: 
  Country: None (occurrence: None)
  Receive Date: 20090727
  Receipt Date: 20090722
  Transmission Date: 20100115
  Serious: Yes (Hospitalization)
  Sender: FDA-Public Use
  Company Number: B0585084A

PATIENT
  Age: 39 Year
  Sex: Female

DRUGS (6)
  1. AUGMENTIN '125' [Suspect]
     Indication: TOOTH ABSCESS
     Route: 048
     Dates: start: 20090520, end: 20090526
  2. SURGAM [Suspect]
     Indication: TOOTH ABSCESS
     Route: 048
     Dates: start: 20090520, end: 20090525
  3. BRUFEN [Concomitant]
     Indication: TOOTHACHE
     Dosage: 1600MG PER DAY
     Route: 048
     Dates: start: 20090517, end: 20090520
  4. CELESTENE [Concomitant]
     Indication: TOOTH ABSCESS
     Route: 048
     Dates: start: 20090520, end: 20090524
  5. DI-ANTALVIC [Concomitant]
     Indication: TOOTHACHE
     Dosage: 3UNIT PER DAY
     Route: 048
     Dates: start: 20090517, end: 20090519
  6. ACETAMINOPHEN [Concomitant]
     Indication: TOOTHACHE
     Route: 065
     Dates: start: 20090517, end: 20090520

REACTIONS (8)
  - EOSINOPHILIA [None]
  - ERYTHEMA [None]
  - FACE OEDEMA [None]
  - PRURITUS [None]
  - PYREXIA [None]
  - RASH [None]
  - RASH MACULO-PAPULAR [None]
  - SKIN LESION [None]
